FAERS Safety Report 8520949-8 (Version None)
Quarter: 2012Q3

REPORT INFORMATION
  Report Type: 
  Country: None (occurrence: None)
  Receive Date: 20120712
  Receipt Date: 20120712
  Transmission Date: 20120928
  Serious: Yes (Hospitalization)
  Sender: FDA-Public Use
  Company Number: None

PATIENT
  Age: 62 Year
  Sex: Female
  Weight: 78.0187 kg

DRUGS (3)
  1. RIBASPHERE [Concomitant]
  2. VICTRELIS [Suspect]
     Indication: HEPATITIS C
     Dosage: 800MG PO TID
     Route: 048
     Dates: start: 20120223, end: 20120626
  3. PEGASYS [Concomitant]

REACTIONS (3)
  - DISORIENTATION [None]
  - IMPAIRED SELF-CARE [None]
  - CONFUSIONAL STATE [None]
